FAERS Safety Report 24307849 (Version 3)
Quarter: 2024Q3

REPORT INFORMATION
  Report Type: Spontaneous
  Country: FR (occurrence: FR)
  Receive Date: 20240911
  Receipt Date: 20240926
  Transmission Date: 20241017
  Serious: Yes (Hospitalization)
  Sender: Waylis
  Company Number: None

PATIENT
  Age: 43 Year
  Sex: Female
  Weight: 152 kg

DRUGS (6)
  1. VALIUM [Suspect]
     Active Substance: DIAZEPAM
     Indication: Agitation
     Dosage: 10 MG/2 ML, SOLUTION INJECTABLE; AS REQUIRED
     Route: 050
     Dates: start: 20240803
  2. OLANZAPINE [Suspect]
     Active Substance: OLANZAPINE
     Indication: Schizophrenia
     Route: 050
     Dates: start: 20240803
  3. ZUCLOPENTHIXOL ACETATE [Suspect]
     Active Substance: ZUCLOPENTHIXOL ACETATE
     Indication: Schizophrenia
     Dosage: SOLUTION INJECTABLE; AS REQUIRED
     Route: 050
     Dates: start: 20240803
  4. ZUCLOPENTHIXOL ACETATE [Suspect]
     Active Substance: ZUCLOPENTHIXOL ACETATE
     Dosage: SOLUTION INJECTABLE; IN TOTAL
     Dates: start: 20240808, end: 20240808
  5. LOXAPINE [Suspect]
     Active Substance: LOXAPINE
     Indication: Schizophrenia
     Dosage: 50 MG/2 ML, SOLUTION INJECTABLE EN AMPOULE; AS REQUIRED
     Route: 050
     Dates: start: 20240803
  6. LOXAPINE [Suspect]
     Active Substance: LOXAPINE
     Dosage: 50 MG/2 ML, SOLUTION INJECTABLE EN AMPOULE
     Dates: start: 20240807, end: 20240809

REACTIONS (2)
  - Subileus [Recovered/Resolved]
  - Drug interaction [Recovered/Resolved]

NARRATIVE: CASE EVENT DATE: 20240809
